FAERS Safety Report 5357457-1 (Version None)
Quarter: 2007Q2

REPORT INFORMATION
  Report Type: 
  Country: None (occurrence: None)
  Receive Date: 20070614
  Receipt Date: 20070601
  Transmission Date: 20071010
  Serious: No
  Sender: FDA-Public Use
  Company Number: FR-ELI_LILLY_AND_COMPANY-FR200611001482

PATIENT
  Age: 73 Year
  Sex: Female
  Weight: 55 kg

DRUGS (3)
  1. FORTEO [Suspect]
     Indication: OSTEOPOROSIS
     Dosage: 20 UG, DAILY (1/D)
     Route: 058
     Dates: start: 20060626
  2. LANSOPRAZOLE [Concomitant]
     Indication: GASTROOESOPHAGEAL REFLUX DISEASE
     Dosage: 1 D/F, DAILY (1/D)
  3. OROCAL D(3) [Concomitant]
     Dosage: 1 D/F, DAILY (1/D)
     Dates: start: 20010101

REACTIONS (2)
  - PRURITUS [None]
  - VERTIGO [None]
